FAERS Safety Report 16451074 (Version 1)
Quarter: 2019Q3

REPORT INFORMATION
  Report Type: Spontaneous
  Country: US (occurrence: US)
  Receive Date: 20190618
  Receipt Date: 20190618
  Transmission Date: 20191004
  Serious: Yes (Other)
  Sender: FDA-Public Use
  Company Number: None

PATIENT
  Age: 30 Year
  Sex: Female
  Weight: 49.5 kg

DRUGS (1)
  1. NUMB SKIN [Suspect]
     Active Substance: LIDOCAINE
     Indication: TATTOO
     Route: 061
     Dates: start: 20190607, end: 20190608

REACTIONS (3)
  - Product use complaint [None]
  - Application site pain [None]
  - Product use in unapproved indication [None]

NARRATIVE: CASE EVENT DATE: 20190607
